FAERS Safety Report 13641195 (Version 1)
Quarter: 2017Q2

REPORT INFORMATION
  Report Type: Spontaneous
  Country: VN (occurrence: VN)
  Receive Date: 20170612
  Receipt Date: 20170612
  Transmission Date: 20170830
  Serious: Yes (Other)
  Sender: FDA-Public Use
  Company Number: VN-ROCHE-1945821

PATIENT
  Age: 70 Year
  Weight: 50 kg

DRUGS (5)
  1. METHOTREXATE. [Suspect]
     Active Substance: METHOTREXATE
     Dosage: 4 TABLETS OF 2.5 MG EVERY WEEK
     Route: 065
     Dates: start: 20160113
  2. ACID FOLIC [Suspect]
     Active Substance: FOLIC ACID
     Indication: RHEUMATOID ARTHRITIS
     Route: 065
     Dates: start: 20150113
  3. ACTEMRA [Suspect]
     Active Substance: TOCILIZUMAB
     Indication: RHEUMATOID ARTHRITIS
     Dosage: SUBSEQUENT DOSES ON: 10/FEB/2015, 11/MAR/2015, 10/APR/2015, 08/MAY/2015, 05/JUN/2015, 03/JUL/2015, 0
     Route: 041
     Dates: start: 20150113, end: 20151202
  4. ACTEMRA [Suspect]
     Active Substance: TOCILIZUMAB
     Dosage: SUBSEQUENT DOSES ON: 25/FEB/2016, 06/APR/2016, 19/MAY/2016, 02/AUG/2016, 11/OCT/2016, 21/DEC/2016, 1
     Route: 041
     Dates: start: 20160113
  5. METHOTREXATE. [Suspect]
     Active Substance: METHOTREXATE
     Indication: RHEUMATOID ARTHRITIS
     Dosage: 4 TABLETS
     Route: 065
     Dates: start: 20150113, end: 20151202

REACTIONS (4)
  - Otitis media [Unknown]
  - Intentional product misuse [Unknown]
  - Tooth abscess [Unknown]
  - Fracture [Unknown]

NARRATIVE: CASE EVENT DATE: 20160802
